FAERS Safety Report 4902735-0 (Version None)
Quarter: 2006Q1

REPORT INFORMATION
  Report Type: 
  Country: None (occurrence: None)
  Receive Date: 20060207
  Receipt Date: 20031215
  Transmission Date: 20060701
  Serious: Yes (Hospitalization)
  Sender: FDA-Public Use
  Company Number: FR-BRISTOL-MYERS SQUIBB COMPANY-12458691

PATIENT
  Age: 21 Year
  Sex: Female

DRUGS (2)
  1. AMOXICILLIN [Suspect]
     Route: 048
     Dates: start: 20031023, end: 20031026
  2. NIFLURIL [Suspect]
     Route: 048
     Dates: start: 20031023, end: 20031026

REACTIONS (1)
  - RENAL FAILURE ACUTE [None]
